FAERS Safety Report 5340773-7 (Version None)
Quarter: 2007Q2

REPORT INFORMATION
  Report Type: 
  Country: None (occurrence: None)
  Receive Date: 20070531
  Receipt Date: 20070518
  Transmission Date: 20071010
  Serious: Yes (Hospitalization, Other)
  Sender: FDA-Public Use
  Company Number: US-SHR-US-2007-017989

PATIENT
  Age: 59 Year
  Sex: Female

DRUGS (1)
  1. BETASERON [Suspect]
     Indication: PRIMARY PROGRESSIVE MULTIPLE SCLEROSIS
     Dosage: 8 MIU, EVERY 2D
     Route: 058
     Dates: start: 20050408

REACTIONS (6)
  - DEHYDRATION [None]
  - DIZZINESS [None]
  - GASTROINTESTINAL DISORDER [None]
  - ORTHOSTATIC HYPOTENSION [None]
  - SYNCOPE [None]
  - URINARY TRACT INFECTION [None]
